FAERS Safety Report 18258927 (Version 1)
Quarter: 2020Q3

REPORT INFORMATION
  Report Type: Spontaneous
  Country: US (occurrence: US)
  Receive Date: 20200911
  Receipt Date: 20200911
  Transmission Date: 20201103
  Serious: Yes (Hospitalization, Other)
  Sender: FDA-Public Use
  Company Number: US-JNJFOC-A-NJ2020-200136

PATIENT
  Age: 20 Year
  Sex: Female
  Weight: 49.43 kg

DRUGS (4)
  1. REVATIO [Concomitant]
     Active Substance: SILDENAFIL CITRATE
  2. OPSUMIT [Suspect]
     Active Substance: MACITENTAN
     Indication: PULMONARY ARTERIAL HYPERTENSION
     Dosage: 10 MG, QD
     Route: 048
  3. REMODULIN [Concomitant]
     Active Substance: TREPROSTINIL
  4. SEROQUEL [Suspect]
     Active Substance: QUETIAPINE FUMARATE
     Indication: PRODUCT USED FOR UNKNOWN INDICATION
     Route: 065

REACTIONS (9)
  - Fluid overload [Unknown]
  - Palpitations [Unknown]
  - Nausea [Unknown]
  - Hospitalisation [Unknown]
  - Polyuria [Unknown]
  - Adverse reaction [Unknown]
  - Dyspnoea at rest [Unknown]
  - Hospitalisation [Unknown]
  - Flatulence [Unknown]

NARRATIVE: CASE EVENT DATE: 20191216
